FAERS Safety Report 17228879 (Version 1)
Quarter: 2020Q1

REPORT INFORMATION
  Report Type: Report from Study
  Country: IN (occurrence: IN)
  Receive Date: 20200103
  Receipt Date: 20200103
  Transmission Date: 20200409
  Serious: Yes (Other)
  Sender: FDA-Public Use
  Company Number: IN-MYLANLABS-2019M1132873

PATIENT
  Age: 42 Year
  Sex: Male

DRUGS (6)
  1. PREDNISOLONE. [Concomitant]
     Active Substance: PREDNISOLONE
     Indication: BRAIN OEDEMA
     Dosage: STARTED BEFORE BEVACIZUMAB AND AFTER HIGH-DOSE DEXAMETHASONE
     Route: 065
  2. DEXAMETHASONE. [Suspect]
     Active Substance: DEXAMETHASONE
     Indication: BRAIN OEDEMA
     Dosage: FOR AT LEAST 3 WEEKS
     Route: 065
  3. DEXAMETHASONE. [Suspect]
     Active Substance: DEXAMETHASONE
     Dosage: AT REDUCED DOSES WITH PREDNISOLONE AND BEVACIZUMAB
     Route: 065
  4. BEVACIZUMAB. [Suspect]
     Active Substance: BEVACIZUMAB
     Indication: BRAIN OEDEMA
     Dosage: FIRST DOSE
     Route: 042
  5. BEVACIZUMAB. [Suspect]
     Active Substance: BEVACIZUMAB
     Dosage: THIRD DOSE AND CONTINUED THEREAFTER AT TWO WEEKS...
     Route: 042
  6. BEVACIZUMAB. [Suspect]
     Active Substance: BEVACIZUMAB
     Dosage: SECOND DOSE; TWO WEEKS AFTER THE FIRST DOSE
     Route: 042

REACTIONS (2)
  - Off label use [Unknown]
  - Therapy non-responder [Unknown]
